FAERS Safety Report 5355181-2 (Version None)
Quarter: 2007Q2

REPORT INFORMATION
  Report Type: 
  Country: None (occurrence: None)
  Receive Date: 20070518
  Receipt Date: 20070129
  Transmission Date: 20071010
  Serious: Yes (Other)
  Sender: FDA-Public Use
  Company Number: HQWYE924130JAN07

PATIENT
  Age: 30 Year
  Sex: Female

DRUGS (1)
  1. ALESSE [Suspect]
     Indication: CONTRACEPTION
     Dosage: TABLET 1X PER 1 DAY, ORAL
     Route: 048

REACTIONS (2)
  - DRUG INEFFECTIVE [None]
  - UNINTENDED PREGNANCY [None]
